FAERS Safety Report 6763254-2 (Version None)
Quarter: 2010Q2

REPORT INFORMATION
  Report Type: 
  Country: None (occurrence: None)
  Receive Date: 20100610
  Receipt Date: 20100527
  Transmission Date: 20101027
  Serious: Yes (Hospitalization)
  Sender: FDA-Public Use
  Company Number: US-ASTRAZENECA-2010SE26584

PATIENT
  Age: 17301 Day
  Sex: Male

DRUGS (4)
  1. SEROQUEL [Suspect]
     Route: 048
     Dates: start: 20070602
  2. AMBIEN CR [Concomitant]
     Route: 048
     Dates: start: 20070602
  3. CRESTOR [Concomitant]
     Route: 048
     Dates: start: 20070602
  4. TOPROL-XL [Concomitant]
     Route: 048
     Dates: start: 20070602

REACTIONS (8)
  - CORONARY ARTERY DISEASE [None]
  - DIABETES MELLITUS [None]
  - DYSLIPIDAEMIA [None]
  - MYOCARDIAL INFARCTION [None]
  - OBESITY [None]
  - OSTEOARTHRITIS [None]
  - RETINITIS PIGMENTOSA [None]
  - TOBACCO ABUSE [None]
